FAERS Safety Report 16639889 (Version 3)
Quarter: 2019Q4

REPORT INFORMATION
  Report Type: Report from Study
  Country: None (occurrence: US)
  Receive Date: 20190727
  Receipt Date: 20191002
  Transmission Date: 20200122
  Serious: Yes (Other)
  Sender: FDA-Public Use
  Company Number: US-ABBVIE-19K-163-2654918-00

PATIENT
  Sex: Female

DRUGS (2)
  1. HUMIRA [Suspect]
     Active Substance: ADALIMUMAB
     Indication: CROHN^S DISEASE
     Route: 058
     Dates: start: 20161201, end: 201809
  2. HUMIRA [Suspect]
     Active Substance: ADALIMUMAB
     Route: 058
     Dates: start: 201810

REACTIONS (12)
  - Abdominal adhesions [Unknown]
  - Off label use [Unknown]
  - Arthralgia [Unknown]
  - Arthritis enteropathic [Unknown]
  - Sciatic nerve neuropathy [Unknown]
  - Back pain [Not Recovered/Not Resolved]
  - Jaw disorder [Unknown]
  - Malaise [Unknown]
  - Crohn^s disease [Unknown]
  - Anxiety [Not Recovered/Not Resolved]
  - Intestinal stenosis [Unknown]
  - Gastrointestinal injury [Unknown]
